FAERS Safety Report 9641085 (Version 1)
Quarter: 2013Q4

REPORT INFORMATION
  Report Type: Spontaneous
  Country: BR (occurrence: BR)
  Receive Date: 20131023
  Receipt Date: 20131023
  Transmission Date: 20140711
  Serious: Yes (Other)
  Sender: FDA-Public Use
  Company Number: BR-SA-2013SA104789

PATIENT
  Sex: Male
  Weight: 75 kg

DRUGS (3)
  1. LANTUS [Suspect]
     Indication: TYPE 2 DIABETES MELLITUS
     Dosage: STRENGTH: 10 ML VIAL
     Route: 058
     Dates: start: 2003
  2. RUTOSIDE [Concomitant]
     Indication: CARDIOVASCULAR DISORDER
     Dosage: STRENGTH: 500 MG
     Route: 048
  3. SOMALGIN CARDIO [Concomitant]
     Dosage: STRENGTH: 100 MG
     Route: 048

REACTIONS (3)
  - Cerebrovascular accident [Recovering/Resolving]
  - Aphasia [Recovering/Resolving]
  - Tremor [Unknown]
